FAERS Safety Report 4633402-9 (Version None)
Quarter: 2005Q2

REPORT INFORMATION
  Report Type: 
  Country: None (occurrence: None)
  Receive Date: 20050408
  Receipt Date: 20050326
  Transmission Date: 20051028
  Serious: Yes (Other)
  Sender: FDA-Public Use
  Company Number: 2004114335

PATIENT
  Age: 75 Year
  Sex: Male

DRUGS (1)
  1. CELEBREX [Suspect]
     Indication: PROSTATITIS
     Dosage: (200 MG)
     Dates: start: 20020101

REACTIONS (1)
  - POLYCYTHAEMIA VERA [None]
